FAERS Safety Report 13191979 (Version 1)
Quarter: 2017Q1

REPORT INFORMATION
  Report Type: Spontaneous
  Country: US (occurrence: US)
  Receive Date: 20170207
  Receipt Date: 20170207
  Transmission Date: 20170428
  Serious: No
  Sender: FDA-Public Use
  Company Number: US-PFIZER INC-2017045279

PATIENT
  Age: 12 Year
  Sex: Female
  Weight: 47 kg

DRUGS (1)
  1. IBUPROFEN. [Suspect]
     Active Substance: IBUPROFEN
     Indication: PAIN
     Dosage: UNK
     Dates: start: 20170128

REACTIONS (2)
  - Pain [Unknown]
  - Condition aggravated [Unknown]

NARRATIVE: CASE EVENT DATE: 20170128
